FAERS Safety Report 8232495-X (Version None)
Quarter: 2012Q1

REPORT INFORMATION
  Report Type: 
  Country: None (occurrence: None)
  Receive Date: 20120323
  Receipt Date: 20120313
  Transmission Date: 20120608
  Serious: Yes (Other)
  Sender: FDA-Public Use
  Company Number: BR-ELI_LILLY_AND_COMPANY-BR201203003802

PATIENT
  Sex: Female
  Weight: 105 kg

DRUGS (12)
  1. METFORMIN HCL [Concomitant]
     Dosage: UNK, UNKNOWN
     Route: 065
  2. MILGAMMA [Concomitant]
     Dosage: UNK, UNKNOWN
     Route: 065
  3. HUMALOG [Suspect]
     Indication: DIABETES MELLITUS
     Dosage: UNK, QID
     Route: 058
  4. LERCANIDIPINE [Concomitant]
     Dosage: UNK, UNKNOWN
  5. NEUTROFER [Concomitant]
     Dosage: UNK UNK, UNKNOWN
     Route: 065
  6. NEXIUM [Concomitant]
     Dosage: UNK, UNKNOWN
  7. DIOVAN HCT [Concomitant]
     Dosage: UNK, UNKNOWN
     Route: 065
  8. ALDACTONE [Concomitant]
     Dosage: UNK, UNKNOWN
     Route: 065
  9. LEVOTHYROXINE SODIUM [Concomitant]
     Dosage: UNK, UNKNOWN
     Route: 065
  10. LEXAPRO [Concomitant]
     Dosage: UNK, UNKNOWN
     Route: 065
  11. GABAPENTIN [Concomitant]
     Dosage: UNK, UNKNOWN
     Route: 065
  12. RASILEZ [Concomitant]
     Dosage: UNK, UNKNOWN
     Route: 065

REACTIONS (2)
  - INCORRECT DOSE ADMINISTERED [None]
  - HYPERGLYCAEMIA [None]
